FAERS Safety Report 5173197-6 (Version None)
Quarter: 2006Q4

REPORT INFORMATION
  Report Type: 
  Country: None (occurrence: None)
  Receive Date: 20061214
  Receipt Date: 20060201
  Transmission Date: 20070319
  Serious: Yes (Death)
  Sender: FDA-Public Use
  Company Number: 2006AP00558

PATIENT
  Age: 79 Year
  Sex: Male

DRUGS (7)
  1. CRESTOR [Suspect]
     Indication: HYPERCHOLESTEROLAEMIA
     Route: 048
     Dates: start: 20050708, end: 20051201
  2. CLARITHROMYCIN [Concomitant]
     Indication: EMPHYSEMA
     Route: 048
     Dates: start: 20030711
  3. THEO-DUR [Concomitant]
     Indication: EMPHYSEMA
     Route: 048
     Dates: start: 20030711
  4. CLEANAL [Concomitant]
     Indication: EMPHYSEMA
     Route: 048
     Dates: start: 20030711
  5. LENDORMIN D [Concomitant]
     Indication: INSOMNIA
     Route: 048
     Dates: start: 20040416
  6. PARIET [Concomitant]
     Indication: GASTRIC ULCER
     Route: 048
     Dates: start: 20050513
  7. GASLON N [Concomitant]
     Indication: GASTRIC ULCER
     Route: 048
     Dates: start: 20050513

REACTIONS (1)
  - EMPHYSEMA [None]
